FAERS Safety Report 8819605 (Version 1)
Quarter: 2012Q4

REPORT INFORMATION
  Report Type: 
  Country: US (occurrence: US)
  Receive Date: 20121001
  Receipt Date: 20121001
  Transmission Date: 20130627
  Serious: Yes (Other)
  Sender: FDA-Public Use
  Company Number: US-BIOGENIDEC-2012BI040393

PATIENT
  Age: 61 Year
  Sex: Female

DRUGS (2)
  1. AVONEX [Suspect]
     Indication: MULTIPLE SCLEROSIS
     Route: 030
     Dates: start: 2012
  2. AVONEX [Suspect]
     Indication: MULTIPLE SCLEROSIS
     Route: 030
     Dates: start: 20120825

REACTIONS (7)
  - Sensory disturbance [Unknown]
  - Tremor [Unknown]
  - Bruxism [Unknown]
  - Adverse reaction [Unknown]
  - Influenza like illness [Unknown]
  - Dyspnoea [Unknown]
  - Chills [Unknown]
